FAERS Safety Report 7390485-3 (Version None)
Quarter: 2011Q2

REPORT INFORMATION
  Report Type: 
  Country: None (occurrence: None)
  Receive Date: 20110401
  Receipt Date: 20110324
  Transmission Date: 20111010
  Serious: Yes (Hospitalization, Other)
  Sender: FDA-Public Use
  Company Number: US-RB-024621-11

PATIENT
  Age: 52 Year
  Sex: Female

DRUGS (5)
  1. SUBOXONE [Suspect]
     Dosage: SELF TAPERED AND STOPPED
     Route: 060
     Dates: start: 20110216, end: 20110301
  2. AMBIEN [Concomitant]
     Indication: SLEEP DISORDER
     Dosage: DOSING INFORMATION UNKNOWN
     Route: 065
     Dates: start: 20010101
  3. SUBOXONE [Suspect]
     Indication: DRUG DEPENDENCE
     Route: 060
     Dates: start: 20110211, end: 20110212
  4. PROZAC [Concomitant]
     Indication: MENOPAUSE
     Route: 065
     Dates: start: 20070101
  5. SUBOXONE [Suspect]
     Route: 060
     Dates: start: 20110213, end: 20110215

REACTIONS (8)
  - DECREASED APPETITE [None]
  - CHILLS [None]
  - INTENTIONAL DRUG MISUSE [None]
  - CONSTIPATION [None]
  - RECTAL HAEMORRHAGE [None]
  - MUSCLE SPASMS [None]
  - DYSARTHRIA [None]
  - ANXIETY [None]
